FAERS Safety Report 5099752-X (Version None)
Quarter: 2006Q3

REPORT INFORMATION
  Report Type: 
  Country: None (occurrence: None)
  Receive Date: 20060908
  Receipt Date: 20060830
  Transmission Date: 20061208
  Serious: Yes (Hospitalization)
  Sender: FDA-Public Use
  Company Number: FR-ROCHE-461708

PATIENT
  Age: 86 Year
  Sex: Female
  Weight: 90 kg

DRUGS (6)
  1. NICARDIPINE HYDROCHLORIDE [Suspect]
     Indication: HYPERTENSION
     Route: 048
     Dates: start: 20060415, end: 20060717
  2. NICARDIPINE HYDROCHLORIDE [Suspect]
     Route: 048
     Dates: start: 20060731
  3. MOPRAL [Suspect]
     Indication: DRUG USE FOR UNKNOWN INDICATION
     Route: 048
     Dates: start: 20060415, end: 20060717
  4. NEO-MERCAZOLE TAB [Suspect]
     Indication: HYPERTHYROIDISM
     Route: 048
     Dates: start: 20060415, end: 20060717
  5. LASILIX [Suspect]
     Indication: CARDIAC FAILURE
     Route: 048
     Dates: start: 20060620, end: 20060717
  6. SOLUPRED [Suspect]
     Indication: DRUG USE FOR UNKNOWN INDICATION
     Route: 048
     Dates: start: 20060415

REACTIONS (2)
  - DERMATITIS BULLOUS [None]
  - RASH MACULO-PAPULAR [None]
